FAERS Safety Report 14844034 (Version 1)
Quarter: 2018Q2

REPORT INFORMATION
  Report Type: Spontaneous
  Country: SE (occurrence: SE)
  Receive Date: 20180503
  Receipt Date: 20180503
  Transmission Date: 20180711
  Serious: Yes (Other)
  Sender: FDA-Public Use
  Company Number: SE-GILEAD-2018-0336327

PATIENT
  Age: 49 Year
  Sex: Female

DRUGS (1)
  1. EPCLUSA [Suspect]
     Active Substance: SOFOSBUVIR\VELPATASVIR
     Indication: HEPATITIS
     Dosage: 1 DF, UNK
     Route: 048
     Dates: start: 20180301, end: 20180418

REACTIONS (1)
  - Gingivitis [Recovered/Resolved with Sequelae]

NARRATIVE: CASE EVENT DATE: 20180318
